FAERS Safety Report 5577666-6 (Version None)
Quarter: 2007Q4

REPORT INFORMATION
  Report Type: 
  Country: None (occurrence: None)
  Receive Date: 20071231
  Receipt Date: 20071227
  Transmission Date: 20080405
  Serious: Yes (Other)
  Sender: FDA-Public Use
  Company Number: PHNU2007DE04267

PATIENT
  Sex: Male

DRUGS (2)
  1. TRIAMTERENE AND HYDROCHLOROTHIAZIDE [Concomitant]
     Dosage: UNK, UNK
  2. EXFORGE [Suspect]
     Dosage: UNK, UNK
     Dates: start: 20070901

REACTIONS (2)
  - BURSITIS [None]
  - TENOSYNOVITIS [None]
